APPROVED DRUG PRODUCT: IRRIGATING SOLUTION G IN PLASTIC CONTAINER
Active Ingredient: CITRIC ACID; MAGNESIUM OXIDE; SODIUM CARBONATE
Strength: 3.24GM/100ML;380MG/100ML;430MG/100ML
Dosage Form/Route: SOLUTION;IRRIGATION
Application: N018519 | Product #001
Applicant: BAXTER HEALTHCARE CORP
Approved: Jun 22, 1982 | RLD: No | RS: No | Type: DISCN